FAERS Safety Report 22627760 (Version 5)
Quarter: 2024Q1

REPORT INFORMATION
  Report Type: Report from Study
  Country: US (occurrence: US)
  Receive Date: 20230622
  Receipt Date: 20240320
  Transmission Date: 20240410
  Serious: Yes (Hospitalization, Other)
  Sender: FDA-Public Use
  Company Number: US-ABBVIE-5299376

PATIENT
  Sex: Female

DRUGS (3)
  1. HUMIRA [Suspect]
     Active Substance: ADALIMUMAB
     Indication: Hidradenitis
     Dosage: CITRATE FREE, FORM STRENGTH: 40 MILLIGRAM?DRUG END DATE --2023
     Route: 058
     Dates: start: 20221111
  2. HUMIRA [Suspect]
     Active Substance: ADALIMUMAB
     Dosage: CITRATE FREE, FORM STRENGTH: 40 MILLIGRAM
     Route: 058
  3. HUMIRA [Suspect]
     Active Substance: ADALIMUMAB
     Dosage: CITRATE FREE,  FORM STRENGTH: 40 MILLIGRAM
     Route: 058

REACTIONS (9)
  - Exostosis [Recovering/Resolving]
  - Renal disorder [Unknown]
  - Tenolysis [Recovering/Resolving]
  - Urinary tract infection [Recovered/Resolved]
  - Gastroenteritis viral [Unknown]
  - Tarsal tunnel syndrome [Recovering/Resolving]
  - Splenomegaly [Unknown]
  - Exposure to communicable disease [Unknown]
  - Pulmonary granuloma [Unknown]

NARRATIVE: CASE EVENT DATE: 20230101
